FAERS Safety Report 16290211 (Version 3)
Quarter: 2019Q3

REPORT INFORMATION
  Report Type: Spontaneous
  Country: BY (occurrence: BY)
  Receive Date: 20190509
  Receipt Date: 20190730
  Transmission Date: 20191004
  Serious: Yes (Hospitalization, Disabling, Other)
  Sender: FDA-Public Use
  Company Number: BY-REGENERON PHARMACEUTICALS, INC.-2019-30490

PATIENT

DRUGS (1)
  1. EYLEA [Suspect]
     Active Substance: AFLIBERCEPT
     Indication: RETINAL VEIN OCCLUSION
     Dosage: 0.05 ML, TOTAL OF 4 DOSES, OD
     Dates: end: 20190426

REACTIONS (6)
  - Toxicity to various agents [Unknown]
  - Hypersensitivity [Unknown]
  - Multiple use of single-use product [Unknown]
  - Non-infectious endophthalmitis [Recovered/Resolved]
  - Blindness unilateral [Recovered/Resolved]
  - Suspected product quality issue [Unknown]

NARRATIVE: CASE EVENT DATE: 20190427
